FAERS Safety Report 7051644 (Version 4)
Quarter: 2013Q1

REPORT INFORMATION
  Report Type: Spontaneous
  Country: JP (occurrence: None)
  Receive Date: 20090706
  Receipt Date: 20121025
  Transmission Date: 20140127
  Serious: Yes (Life-Threatening, Hospitalization)
  Sender: FDA-Public Use
  Company Number: 2009JP003949

PATIENT
  Age: 31 Year
  Sex: Male
  Weight: 70 kg

DRUGS (10)
  1. PROGRAF [Suspect]
     Indication: RENAL TRANSPLANT
     Dosage: 4 MG/D, 2/DMG
     Dates: end: 20091127
  2. CELLCEPT [Suspect]
     Dates: start: 200411
  3. MEDROL [Suspect]
     Dates: start: 200411
  4. SOLU-MEDROL (METHYLPREDNISOLONE SODIUM SUCCINATE) [Suspect]
     Route: 042
     Dates: start: 200902
  5. PREDNISOLONE [Concomitant]
  6. AMLODIPINE [Concomitant]
  7. LOSARTAN POTASSIUM [Concomitant]
  8. PERSANTINE [Concomitant]
  9. DILTIAZEM HYDROCHLORIDE [Concomitant]
  10. SIMULECT (BASILIXIMAB) SOLUTION FOR INJECTION [Concomitant]

REACTIONS (10)
  - Post transplant lymphoproliferative disorder [None]
  - Focal segmental glomerulosclerosis [None]
  - Nephrotic syndrome [None]
  - Weight increased [None]
  - Blood cholesterol increased [None]
  - Toxicity to various agents [None]
  - Decreased appetite [None]
  - Somnolence [None]
  - Altered state of consciousness [None]
  - Lymphoma [None]
